FAERS Safety Report 15565107 (Version 1)
Quarter: 2018Q4

REPORT INFORMATION
  Report Type: Spontaneous
  Country: FR (occurrence: FR)
  Receive Date: 20181030
  Receipt Date: 20181030
  Transmission Date: 20190205
  Serious: Yes (Hospitalization)
  Sender: FDA-Public Use
  Company Number: FR-ACCORD-090445

PATIENT
  Age: 31 Year
  Sex: Female

DRUGS (1)
  1. CLOZAPINE. [Suspect]
     Active Substance: CLOZAPINE
     Route: 048
     Dates: start: 20170614, end: 20170614

REACTIONS (2)
  - Intentional product misuse [Unknown]
  - Sedation [Recovered/Resolved]

NARRATIVE: CASE EVENT DATE: 2017
